FAERS Safety Report 7104588-1 (Version None)
Quarter: 2010Q4

REPORT INFORMATION
  Report Type: 
  Country: None (occurrence: None)
  Receive Date: 20101109
  Receipt Date: 20101025
  Transmission Date: 20110411
  Serious: Yes (Hospitalization)
  Sender: FDA-Public Use
  Company Number: AUR-APL-2010-02661

PATIENT
  Age: 36 Year
  Sex: Female

DRUGS (4)
  1. CIPROFLOXACIN [Suspect]
     Indication: URINARY TRACT INFECTION
  2. NITROFURANTOIN [Suspect]
     Indication: URINARY TRACT INFECTION
  3. CYCLOSPORINE [Concomitant]
  4. ORAL STEROID [Concomitant]

REACTIONS (12)
  - ASCITES [None]
  - BLOOD ALBUMIN DECREASED [None]
  - CLOSTRIDIUM DIFFICILE COLITIS [None]
  - CLOSTRIDIUM TEST POSITIVE [None]
  - FATIGUE [None]
  - HYPOTENSION [None]
  - INTERNATIONAL NORMALISED RATIO INCREASED [None]
  - LEUKOCYTOSIS [None]
  - MULTI-ORGAN FAILURE [None]
  - PSEUDOMEMBRANOUS COLITIS [None]
  - RESPIRATORY FAILURE [None]
  - TACHYCARDIA [None]
